FAERS Safety Report 12232047 (Version 2)
Quarter: 2016Q4

REPORT INFORMATION
  Report Type: Spontaneous
  Country: BR (occurrence: BR)
  Receive Date: 20160401
  Receipt Date: 20161118
  Transmission Date: 20170207
  Serious: Yes (Hospitalization, Other)
  Sender: FDA-Public Use
  Company Number: BR-GLAXOSMITHKLINE-BR2016GSK044235

PATIENT
  Age: 1 Year
  Sex: Male
  Weight: 12 kg

DRUGS (4)
  1. AEROLIN [Suspect]
     Active Substance: ALBUTEROL
     Indication: BRONCHITIS
     Dosage: 4 PUFF(S), BID
     Route: 055
  2. FLIXOTIDE [Suspect]
     Active Substance: FLUTICASONE PROPIONATE
     Indication: BRONCHITIS
     Dosage: 3 PUFF(S), BID
     Route: 055
  3. ZINNAT [Suspect]
     Active Substance: CEFUROXIME AXETIL
     Indication: PNEUMONIA
     Dosage: UNK
     Route: 048
     Dates: start: 20160312, end: 20160322
  4. ZINNAT [Suspect]
     Active Substance: CEFUROXIME AXETIL
     Dosage: 3.5 ML, BID
     Dates: end: 20160322

REACTIONS (5)
  - Overdose [Unknown]
  - Incorrect dose administered [Unknown]
  - Product quality issue [Unknown]
  - Product use issue [Unknown]
  - Pneumonia [Recovered/Resolved]

NARRATIVE: CASE EVENT DATE: 20160320
